FAERS Safety Report 8212532-9 (Version None)
Quarter: 2012Q1

REPORT INFORMATION
  Report Type: 
  Country: None (occurrence: None)
  Receive Date: 20120315
  Receipt Date: 20120312
  Transmission Date: 20120608
  Serious: Yes (Other)
  Sender: FDA-Public Use
  Company Number: DE-GLAXOSMITHKLINE-D0074851A

PATIENT
  Sex: Male

DRUGS (4)
  1. TASMAR [Suspect]
     Route: 048
  2. RASAGILINE MESYLATE [Suspect]
     Route: 048
  3. REQUIP [Suspect]
     Indication: PARKINSON'S DISEASE
     Dosage: 6MG TWICE PER DAY
     Route: 048
  4. L-DOPA [Suspect]
     Route: 048

REACTIONS (2)
  - HALLUCINATION [None]
  - MEDICATION ERROR [None]
